FAERS Safety Report 24978412 (Version 1)
Quarter: 2025Q1

REPORT INFORMATION
  Report Type: Report from Study
  Country: TW (occurrence: TW)
  Receive Date: 20250217
  Receipt Date: 20250217
  Transmission Date: 20250409
  Serious: Yes (Hospitalization)
  Sender: ALEXION PHARMACEUTICALS
  Company Number: TW-AstraZeneca-CH-00807511A

PATIENT

DRUGS (1)
  1. DURVALUMAB [Suspect]
     Active Substance: DURVALUMAB

REACTIONS (1)
  - Bacterial infection [Unknown]
